FAERS Safety Report 10997710 (Version 1)
Quarter: 2015Q2

REPORT INFORMATION
  Report Type: Spontaneous
  Country: JP (occurrence: JP)
  Receive Date: 20150408
  Receipt Date: 20150408
  Transmission Date: 20150821
  Serious: Yes (Life-Threatening, Hospitalization)
  Sender: FDA-Public Use
  Company Number: JP-PFIZER INC-2015118815

PATIENT
  Age: 80 Year

DRUGS (1)
  1. BOSULIF [Suspect]
     Active Substance: BOSUTINIB MONOHYDRATE
     Indication: CHRONIC MYELOID LEUKAEMIA TRANSFORMATION
     Dosage: 200 MG, DAILY
     Route: 048
     Dates: start: 20150323, end: 2015

REACTIONS (1)
  - Tumour lysis syndrome [Recovering/Resolving]

NARRATIVE: CASE EVENT DATE: 20150329
